FAERS Safety Report 8825995 (Version 1)
Quarter: 2012Q4

REPORT INFORMATION
  Report Type: 
  Country: DE (occurrence: DE)
  Receive Date: 20121005
  Receipt Date: 20121005
  Transmission Date: 20130627
  Serious: Yes (Hospitalization)
  Sender: FDA-Public Use
  Company Number: DE-PFIZER INC-2012243665

PATIENT
  Sex: Male
  Weight: 79 kg

DRUGS (10)
  1. GENOTROPIN [Suspect]
     Indication: GROWTH HORMONE DEFICIENCY
     Dosage: 0.2 mg, 7/wk
     Route: 058
     Dates: start: 20040519
  2. MYLEPSINUM [Concomitant]
     Indication: DYSKINESIA
     Dosage: UNK
     Dates: start: 19961115
  3. TESTOSTERONE [Concomitant]
     Indication: BLOOD LUTEINISING HORMONE DECREASED
     Dosage: UNK
     Dates: start: 19960515
  4. TESTOSTERONE [Concomitant]
     Indication: BLOOD FOLLICLE STIMULATING HORMONE DECREASED
  5. TESTOSTERONE [Concomitant]
     Indication: HYPOGONADISM MALE
  6. GODAMED [Concomitant]
     Indication: ANTICOAGULANT THERAPY
     Dosage: UNK
     Dates: start: 20021215
  7. PRAVASIN [Concomitant]
     Indication: HYPERCHOLESTEROLAEMIA
     Dosage: UNK
     Dates: start: 20021215
  8. L-THYROXIN [Concomitant]
     Indication: BLOOD THYROID STIMULATING HORMONE DECREASED
     Dosage: UNK
     Dates: start: 20050519
  9. L-THYROXIN [Concomitant]
     Indication: PRIMARY HYPOTHYROIDISM
  10. HYDROCORTISONE [Concomitant]
     Indication: BLOOD CORTICOTROPHIN DECREASED
     Dosage: UNK
     Dates: start: 20050117

REACTIONS (1)
  - Spinal column stenosis [Unknown]
